FAERS Safety Report 4847412-X (Version None)
Quarter: 2005Q4

REPORT INFORMATION
  Report Type: 
  Country: None (occurrence: None)
  Receive Date: 20051205
  Receipt Date: 20051122
  Transmission Date: 20060501
  Serious: Yes (Hospitalization)
  Sender: FDA-Public Use
  Company Number: 05USA0233

PATIENT
  Age: 49 Year
  Sex: Female

DRUGS (1)
  1. GLIADEL [Suspect]
     Indication: ASTROCYTOMA
     Dosage: 7.7 MG/WAFER (NUMBER OF WAFERS IMPLANTED NR)
     Dates: start: 20051117

REACTIONS (4)
  - HYPERTENSION [None]
  - POST PROCEDURAL COMPLICATION [None]
  - TACHYCARDIA [None]
  - TINNITUS [None]
